FAERS Safety Report 25673407 (Version 1)
Quarter: 2025Q3

REPORT INFORMATION
  Report Type: Spontaneous
  Country: EU (occurrence: EU)
  Receive Date: 20250813
  Receipt Date: 20250813
  Transmission Date: 20251021
  Serious: Yes (Life-Threatening)
  Sender: TEVA
  Company Number: None

PATIENT
  Age: 56 Year
  Sex: Female
  Weight: 67 kg

DRUGS (2)
  1. CELECOXIB [Suspect]
     Active Substance: CELECOXIB
     Indication: Product used for unknown indication
     Dosage: 2 X DGS (MAX 10 X TAKEN SPREAD OVER 1.5 YEARS)
     Route: 048
     Dates: start: 20250725, end: 20250728
  2. CELECOXIB [Suspect]
     Active Substance: CELECOXIB
     Indication: Product used for unknown indication
     Dosage: 2 X DGS (MAX 10 X TAKEN SPREAD OVER 1.5 YEARS), BRAND NAME NOT SPECIFIED
     Route: 048
     Dates: start: 20250725, end: 20250728

REACTIONS (1)
  - Angioedema [Recovered/Resolved]
